FAERS Safety Report 6855149-0 (Version None)
Quarter: 2010Q3

REPORT INFORMATION
  Report Type: 
  Country: None (occurrence: None)
  Receive Date: 20100717
  Receipt Date: 20100421
  Transmission Date: 20110219
  Serious: Yes (Other)
  Sender: FDA-Public Use
  Company Number: US-PFIZER INC-2007106353

PATIENT
  Sex: Female
  Weight: 40.816 kg

DRUGS (6)
  1. CHANTIX [Suspect]
     Dosage: 0.5 MG, 2X/DAY
     Route: 048
     Dates: start: 20070101, end: 20070101
  2. NORVASC [Concomitant]
  3. AVAPRO [Concomitant]
  4. ATENOLOL [Concomitant]
  5. METFORMIN HCL [Concomitant]
     Indication: DIABETES MELLITUS
  6. GLIPIZIDE [Concomitant]

REACTIONS (6)
  - ABDOMINAL DISCOMFORT [None]
  - CONSTIPATION [None]
  - FLATULENCE [None]
  - INSOMNIA [None]
  - PARANOIA [None]
  - WEIGHT DECREASED [None]
